FAERS Safety Report 20076804 (Version 1)
Quarter: 2021Q4

REPORT INFORMATION
  Report Type: Spontaneous
  Country: BR (occurrence: None)
  Receive Date: 20211116
  Receipt Date: 20211116
  Transmission Date: 20220303
  Serious: Yes (Other)
  Sender: FDA-Public Use
  Company Number: 2021A808180

PATIENT
  Age: 40 Year
  Sex: Female

DRUGS (2)
  1. OLAPARIB [Suspect]
     Active Substance: OLAPARIB
     Indication: Ovarian adenoma
     Route: 048
     Dates: start: 20210624
  2. OLAPARIB [Suspect]
     Active Substance: OLAPARIB
     Indication: Ovarian adenoma
     Dosage: 50 PERCENT OF THE DOSE
     Route: 048

REACTIONS (5)
  - Encephalopathy [Recovered/Resolved]
  - Lethargy [Recovered/Resolved]
  - Memory impairment [Recovered/Resolved]
  - Confusional state [Recovered/Resolved]
  - Dizziness [Recovered/Resolved]

NARRATIVE: CASE EVENT DATE: 20210101
